FAERS Safety Report 7710931-2 (Version None)
Quarter: 2011Q3

REPORT INFORMATION
  Report Type: 
  Country: None (occurrence: None)
  Receive Date: 20110825
  Receipt Date: 20110817
  Transmission Date: 20111222
  Serious: Yes (Hospitalization)
  Sender: FDA-Public Use
  Company Number: DE-GENENTECH-321890

PATIENT
  Sex: Female

DRUGS (13)
  1. CYCLOPHOSPHAMIDE [Suspect]
     Indication: HODGKIN'S DISEASE
     Dosage: 650 MG/M2, UNK
     Route: 042
     Dates: start: 20110705
  2. PREDNISONE [Suspect]
     Indication: HODGKIN'S DISEASE
     Dosage: 40 MG/M2, UNK
     Route: 048
     Dates: start: 20110705
  3. RITUXIMAB [Suspect]
     Dosage: 375 MG/M2, UNK
     Route: 042
     Dates: start: 20110729
  4. ETOPOSIDE [Suspect]
     Indication: HODGKIN'S DISEASE
     Dosage: 100 MG/M2, UNK
     Route: 042
     Dates: start: 20110705
  5. PROCARBAZINE HYDROCHLORIDE [Suspect]
     Dosage: 100 MG/M2, UNK
     Route: 048
     Dates: start: 20110729
  6. PROCARBAZINE HYDROCHLORIDE [Suspect]
     Indication: HODGKIN'S DISEASE
     Dosage: 100 MG/M2, UNK
     Route: 048
     Dates: start: 20110705
  7. BLEOMYCIN [Suspect]
     Indication: HODGKIN'S DISEASE
     Dosage: 10 MG/M2, UNK
     Route: 042
     Dates: start: 20110713
  8. DOXORUBICIN HCL [Suspect]
     Dosage: 25 MG/M2, UNK
     Route: 042
     Dates: start: 20110729
  9. RITUXIMAB [Suspect]
     Indication: HODGKIN'S DISEASE
     Dosage: 375 MG/M2, UNK
     Route: 042
     Dates: start: 20110705
  10. BLEOMYCIN [Suspect]
     Dosage: 10 MG/M2, UNK
     Route: 042
     Dates: start: 20110805
  11. ETOPOSIDE [Suspect]
     Dosage: 100 MG/M2, UNK
     Route: 042
     Dates: start: 20110729
  12. DOXORUBICIN HCL [Suspect]
     Indication: HODGKIN'S DISEASE
     Dosage: 25 MG/M2, UNK
     Route: 042
     Dates: start: 20110705
  13. PREDNISONE [Suspect]
     Dosage: 40 MG, UNK
     Route: 048
     Dates: start: 20110729

REACTIONS (6)
  - PRESYNCOPE [None]
  - CHILLS [None]
  - SEPSIS [None]
  - PYREXIA [None]
  - IRON DEFICIENCY ANAEMIA [None]
  - FEBRILE NEUTROPENIA [None]
